FAERS Safety Report 21766848 (Version 5)
Quarter: 2023Q2

REPORT INFORMATION
  Report Type: Spontaneous
  Country: DE (occurrence: DE)
  Receive Date: 20221222
  Receipt Date: 20230430
  Transmission Date: 20230722
  Serious: Yes (Hospitalization, Other)
  Sender: FDA-Public Use
  Company Number: None

PATIENT
  Age: 44 Year
  Sex: Male

DRUGS (8)
  1. TAMSULOSIN [Suspect]
     Active Substance: TAMSULOSIN
     Indication: Benign prostatic hyperplasia
     Route: 048
     Dates: start: 20221029, end: 20221029
  2. IBUPROFEN [Suspect]
     Active Substance: IBUPROFEN
     Indication: Pain prophylaxis
     Route: 048
     Dates: start: 2022, end: 2022
  3. PANTOPRAZOLE [Suspect]
     Active Substance: PANTOPRAZOLE
     Indication: Prophylaxis against gastrointestinal ulcer
     Route: 048
     Dates: start: 2022, end: 20221029
  4. BRIVIACT [Suspect]
     Active Substance: BRIVARACETAM
     Indication: Symptomatic treatment
     Dates: start: 202210, end: 20221029
  5. PALBOCICLIB [Suspect]
     Active Substance: PALBOCICLIB
     Indication: Product used for unknown indication
     Dosage: 1 DOSAGE FORM, (125 MG, CYCLIC) QD (FOR 3 WEEKS)
     Route: 048
     Dates: start: 20211201, end: 20220531
  6. PALBOCICLIB [Suspect]
     Active Substance: PALBOCICLIB
     Dosage: UNK
     Route: 048
     Dates: start: 20220531
  7. DEXAMETHASONE [Suspect]
     Active Substance: DEXAMETHASONE
     Indication: Prophylaxis
  8. DEXAMETHASONE [Suspect]
     Active Substance: DEXAMETHASONE
     Dosage: UNK
     Dates: start: 202208, end: 20221029

REACTIONS (3)
  - Hydrocephalus [Not Recovered/Not Resolved]
  - Neoplasm progression [Not Recovered/Not Resolved]
  - Headache [Not Recovered/Not Resolved]

NARRATIVE: CASE EVENT DATE: 20221029
